FAERS Safety Report 7428003-3 (Version None)
Quarter: 2011Q2

REPORT INFORMATION
  Report Type: 
  Country: None (occurrence: None)
  Receive Date: 20110412
  Receipt Date: 20110329
  Transmission Date: 20111010
  Serious: Yes (Hospitalization)
  Sender: FDA-Public Use
  Company Number: 030198

PATIENT
  Sex: Male

DRUGS (1)
  1. KEPPRA [Suspect]
     Dosage: (1000 MG, 500MG 2 TABLETS DAILY ORAL)
     Route: 048

REACTIONS (4)
  - CONFUSIONAL STATE [None]
  - ASTHENIA [None]
  - FALL [None]
  - DIET REFUSAL [None]
